FAERS Safety Report 9277910 (Version 2)
Quarter: 2013Q2

REPORT INFORMATION
  Report Type: Spontaneous
  Country: US (occurrence: US)
  Receive Date: 20130508
  Receipt Date: 20130626
  Transmission Date: 20140414
  Serious: No
  Sender: FDA-Public Use
  Company Number: US-BIOGENIDEC-2013BI040525

PATIENT
  Age: 54 Year
  Sex: Female
  Weight: 91 kg

DRUGS (16)
  1. TYSABRI [Suspect]
     Indication: MULTIPLE SCLEROSIS
     Route: 042
     Dates: start: 20070313
  2. AVONEX [Concomitant]
     Indication: MULTIPLE SCLEROSIS
     Route: 030
  3. POLYETHYLENE GLYCOL [Concomitant]
     Route: 048
     Dates: start: 20130411
  4. MIRTAZAPINE [Concomitant]
     Route: 048
     Dates: start: 20130203
  5. CITALOPRAM [Concomitant]
     Route: 048
     Dates: start: 20121126
  6. VITAMIN D [Concomitant]
     Route: 048
  7. TRAZODONE [Concomitant]
     Dates: start: 20121119
  8. KLONOPIN [Concomitant]
     Route: 048
     Dates: start: 20121119
  9. VITAMIN B1 [Concomitant]
     Route: 048
  10. VITAMIN B COMPLEX [Concomitant]
     Route: 048
  11. ASCORBIC ACID [Concomitant]
     Route: 048
  12. VITAMIN B12 [Concomitant]
     Route: 048
  13. IRON [Concomitant]
     Route: 048
  14. CALCIUM + VITAMIN  D [Concomitant]
     Route: 048
  15. BENADRYL [Concomitant]
     Indication: HYPERSENSITIVITY
     Route: 042
     Dates: start: 20120927
  16. MULTIVITAMIN [Concomitant]
     Route: 048

REACTIONS (22)
  - Gallbladder disorder [Recovered/Resolved]
  - Abdominal pain lower [Unknown]
  - Depression [Not Recovered/Not Resolved]
  - Gastric bypass [Not Recovered/Not Resolved]
  - Sleep apnoea syndrome [Not Recovered/Not Resolved]
  - Gait spastic [Unknown]
  - Rhinitis allergic [Not Recovered/Not Resolved]
  - Osteoarthritis [Not Recovered/Not Resolved]
  - Food allergy [Not Recovered/Not Resolved]
  - Drug hypersensitivity [Not Recovered/Not Resolved]
  - Biliary dyskinesia [Unknown]
  - Pain [Unknown]
  - Muscle spasms [Unknown]
  - Hyporeflexia [Unknown]
  - Constipation [Not Recovered/Not Resolved]
  - Headache [Unknown]
  - Relapsing-remitting multiple sclerosis [Not Recovered/Not Resolved]
  - Hepatic enzyme increased [Recovered/Resolved]
  - Nausea [Not Recovered/Not Resolved]
  - Fatigue [Unknown]
  - Cholelithiasis [Recovered/Resolved]
  - Bile duct obstruction [Recovered/Resolved]
